FAERS Safety Report 6188336-8 (Version None)
Quarter: 2009Q2

REPORT INFORMATION
  Report Type: 
  Country: None (occurrence: None)
  Receive Date: 20090513
  Receipt Date: 20090506
  Transmission Date: 20091009
  Serious: Yes (Death)
  Sender: FDA-Public Use
  Company Number: US-GILEAD-2009-0021821

PATIENT
  Sex: Female
  Weight: 42.222 kg

DRUGS (6)
  1. LETAIRIS [Suspect]
     Indication: PULMONARY ARTERIAL HYPERTENSION
     Route: 048
     Dates: start: 20090313
  2. LASIX [Concomitant]
  3. COUMADIN [Concomitant]
  4. ADVAIR HFA [Concomitant]
  5. PROTONIX [Concomitant]
  6. KLOR-CON M20 [Concomitant]

REACTIONS (1)
  - CONDITION AGGRAVATED [None]
